FAERS Safety Report 4323027-7 (Version None)
Quarter: 2004Q1

REPORT INFORMATION
  Report Type: 
  Country: None (occurrence: None)
  Receive Date: 20040319
  Receipt Date: 20040314
  Transmission Date: 20041129
  Serious: Yes (Hospitalization)
  Sender: FDA-Public Use
  Company Number: ENT 2002-0057(1)

PATIENT
  Age: 78 Year
  Sex: Female

DRUGS (13)
  1. COMTAN [Suspect]
     Indication: PARKINSON'S DISEASE
     Dosage: 600MG, 3 IN 1 D, ORAL
     Route: 048
     Dates: start: 20011001, end: 20020401
  2. SYNTHROID [Concomitant]
  3. PRINIVIL [Concomitant]
  4. PREMARIN [Concomitant]
  5. MIRAPEX [Concomitant]
  6. LOPRESSOR [Concomitant]
  7. POTASSIUM [Concomitant]
  8. LASIX [Concomitant]
  9. CLARITIN [Concomitant]
  10. PAXIL [Concomitant]
  11. PROZAK [Concomitant]
  12. SINEMET [Concomitant]
  13. REQUIP [Suspect]
     Dosage: 3 MG, 3 IN 1 D, ORAL
     Route: 048

REACTIONS (9)
  - ASTHENIA [None]
  - DIARRHOEA [None]
  - DIZZINESS [None]
  - DRUG EFFECT INCREASED [None]
  - FALL [None]
  - FATIGUE [None]
  - SLEEP ATTACKS [None]
  - SLEEP WALKING [None]
  - SOMNOLENCE [None]
